FAERS Safety Report 10016649 (Version 2)
Quarter: 2014Q1

REPORT INFORMATION
  Report Type: Spontaneous
  Country: US (occurrence: US)
  Receive Date: 20140317
  Receipt Date: 20140317
  Transmission Date: 20141002
  Serious: Yes (Death)
  Sender: FDA-Public Use
  Company Number: US-GE HEALTHCARE MEDICAL DIAGNOSTICS-OSCN-PR-0710S-0407

PATIENT
  Age: 65 Year
  Sex: Male

DRUGS (5)
  1. OMNISCAN [Suspect]
     Indication: PRODUCT USED FOR UNKNOWN INDICATION
     Route: 042
     Dates: start: 20030411, end: 20030411
  2. OMNISCAN [Suspect]
     Route: 042
     Dates: start: 20041206, end: 20041206
  3. OMNISCAN [Suspect]
     Route: 042
     Dates: start: 20050824, end: 20050824
  4. OMNISCAN [Suspect]
     Route: 042
     Dates: start: 20051005, end: 20051005
  5. MAGNEVIST [Suspect]
     Indication: RENAL CANCER
     Route: 042
     Dates: start: 20050909, end: 20050909

REACTIONS (1)
  - Nephrogenic systemic fibrosis [Fatal]
